FAERS Safety Report 15768118 (Version 2)
Quarter: 2019Q1

REPORT INFORMATION
  Report Type: Spontaneous
  Country: US (occurrence: US)
  Receive Date: 20181227
  Receipt Date: 20190121
  Transmission Date: 20190417
  Serious: No
  Sender: FDA-Public Use
  Company Number: US-PFIZER INC-2018522583

PATIENT
  Sex: Female

DRUGS (3)
  1. PREMARIN [Suspect]
     Active Substance: ESTROGENS, CONJUGATED
     Dosage: 1 G, UNK
  2. PREMARIN [Suspect]
     Active Substance: ESTROGENS, CONJUGATED
     Dosage: UNK
     Dates: start: 20181213
  3. PREMARIN [Suspect]
     Active Substance: ESTROGENS, CONJUGATED
     Dosage: 1/3 OF THAT (1 GRAM) 3 TIMES A WE EK

REACTIONS (7)
  - Abdominal pain [Recovering/Resolving]
  - Sensitive skin [Recovering/Resolving]
  - Product use issue [Unknown]
  - Abdominal distension [Recovering/Resolving]
  - Pelvic pain [Recovering/Resolving]
  - Prolapse [Recovering/Resolving]
  - Nausea [Recovering/Resolving]
